FAERS Safety Report 13563667 (Version 1)
Quarter: 2017Q2

REPORT INFORMATION
  Report Type: Spontaneous
  Country: SE (occurrence: SE)
  Receive Date: 20170519
  Receipt Date: 20170519
  Transmission Date: 20170830
  Serious: Yes (Hospitalization)
  Sender: FDA-Public Use
  Company Number: SE-TEVA-767064ACC

PATIENT
  Age: 60 Year
  Sex: Female

DRUGS (4)
  1. MIRTAZAPINE. [Suspect]
     Active Substance: MIRTAZAPINE
     Dosage: 14 TABLETS
  2. STESOLID [Suspect]
     Active Substance: DIAZEPAM
     Dosage: 14 TABLETS
  3. PROMETHAZINE [Suspect]
     Active Substance: PROMETHAZINE\PROMETHAZINE HYDROCHLORIDE
     Dosage: 24 TABLETS
  4. PROPAVAN [Suspect]
     Active Substance: PROPIOMAZINE
     Dosage: 16 TABLETS

REACTIONS (2)
  - Suicidal ideation [Unknown]
  - Toxicity to various agents [Unknown]

NARRATIVE: CASE EVENT DATE: 20170405
